FAERS Safety Report 6317965-3 (Version None)
Quarter: 2009Q3

REPORT INFORMATION
  Report Type: 
  Country: None (occurrence: None)
  Receive Date: 20090821
  Receipt Date: 20090812
  Transmission Date: 20100115
  Serious: Yes (Other)
  Sender: FDA-Public Use
  Company Number: US-AVENTIS-200917222US

PATIENT
  Age: 60 Year
  Sex: Female

DRUGS (3)
  1. TAXOTERE [Suspect]
     Dosage: DOSE: UNK
     Route: 042
  2. CARBOPLATIN [Suspect]
     Dosage: DOSE: UNK
  3. HERCEPTIN [Suspect]
     Dosage: DOSE: UNK

REACTIONS (1)
  - PANCREATITIS ACUTE [None]
